FAERS Safety Report 16727938 (Version 19)
Quarter: 2021Q1

REPORT INFORMATION
  Report Type: Spontaneous
  Country: DE (occurrence: DE)
  Receive Date: 20190822
  Receipt Date: 20210303
  Transmission Date: 20210419
  Serious: Yes (Other)
  Sender: FDA-Public Use
  Company Number: DE-AUROBINDO-AUR-APL-2019-036660

PATIENT
  Age: 41 Year
  Sex: Female

DRUGS (12)
  1. LETROZOLE. [Suspect]
     Active Substance: LETROZOLE
     Indication: BREAST CANCER METASTATIC
     Dosage: 2.5 MILLIGRAM, ONCE A DAY
     Route: 048
     Dates: start: 20190409, end: 20190806
  2. KISQALI [Suspect]
     Active Substance: RIBOCICLIB
     Indication: BREAST CANCER METASTATIC
     Dosage: 600 MILLIGRAM, CYCLICAL  (SCHEME: 21 DAYS INTAKE, 7 DAYS PAUSE)
     Route: 048
     Dates: start: 20190409, end: 20190519
  3. PALBOCICLIB [Concomitant]
     Active Substance: PALBOCICLIB
     Indication: PRODUCT USED FOR UNKNOWN INDICATION
     Dosage: 75 MILLIGRAM
     Route: 065
  4. LETROZOLE. [Suspect]
     Active Substance: LETROZOLE
     Dosage: 2.5 MILLIGRAM, ONCE A DAY
     Route: 048
     Dates: start: 20190807
  5. KISQALI [Suspect]
     Active Substance: RIBOCICLIB
     Dosage: 600 MILLIGRAM, CYCLICAL  (SCHEME: 21 DAYS INTAKE, 7 DAYS PAUSE)
     Route: 048
     Dates: start: 20190523, end: 20190618
  6. KISQALI [Suspect]
     Active Substance: RIBOCICLIB
     Dosage: 100 MILLIGRAM(21 DAYS INTAKE 7 DAYS PAUSE)
     Route: 048
     Dates: start: 20191212, end: 20200108
  7. KISQALI [Suspect]
     Active Substance: RIBOCICLIB
     Dosage: 600 MILLIGRAM, CYCLICAL  (SCHEME: 21 DAYS INTAKE, 7 DAYS PAUSE)
     Route: 048
     Dates: start: 20190624, end: 20190806
  8. KISQALI [Suspect]
     Active Substance: RIBOCICLIB
     Dosage: 125 MILLIGRAM(21 DAYS INTAKE 7 DAYS PAUSE)
     Route: 048
     Dates: start: 20190910, end: 20190925
  9. KISQALI [Suspect]
     Active Substance: RIBOCICLIB
     Dosage: 100 MILLIGRAM (21 DAYS INTAKE 7 DAYS PAUSE)
     Route: 048
     Dates: start: 20191015, end: 20191208
  10. KISQALI [Suspect]
     Active Substance: RIBOCICLIB
     Dosage: 125 MILLIGRAM(21 DAYS INTAKE 7 DAYS PAUSE)
     Route: 048
     Dates: start: 20190807, end: 20190903
  11. KISQALI [Suspect]
     Active Substance: RIBOCICLIB
     Dosage: 100 MILLIGRAM(21 DAYS INTAKE 7 DAYS PAUSE)
     Route: 048
     Dates: start: 20200113, end: 20200415
  12. CIRCADIN [Concomitant]
     Active Substance: MELATONIN
     Indication: PRODUCT USED FOR UNKNOWN INDICATION
     Dosage: UNK
     Route: 065
     Dates: start: 20200827

REACTIONS (9)
  - Sleep disorder [Not Recovered/Not Resolved]
  - Electrocardiogram QT prolonged [Recovered/Resolved]
  - Hyperaesthesia teeth [Not Recovered/Not Resolved]
  - Leukopenia [Not Recovered/Not Resolved]
  - Neutropenia [Recovered/Resolved]
  - Hot flush [Not Recovered/Not Resolved]
  - Back pain [Unknown]
  - Hypercalcaemia [Not Recovered/Not Resolved]
  - Trigger finger [Not Recovered/Not Resolved]

NARRATIVE: CASE EVENT DATE: 20190507
